FAERS Safety Report 8351774-9 (Version None)
Quarter: 2012Q2

REPORT INFORMATION
  Report Type: 
  Country: None (occurrence: None)
  Receive Date: 20120511
  Receipt Date: 20120503
  Transmission Date: 20120825
  Serious: No
  Sender: FDA-Public Use
  Company Number: US-BIOGENIDEC-2012BI015941

PATIENT
  Age: 60 Year
  Sex: Female

DRUGS (2)
  1. TYSABRI [Suspect]
     Indication: MULTIPLE SCLEROSIS
     Route: 042
     Dates: start: 20120423
  2. CELEXA [Concomitant]
     Indication: DEPRESSION

REACTIONS (4)
  - DEPRESSED MOOD [None]
  - BACK PAIN [None]
  - CYSTITIS [None]
  - UPPER RESPIRATORY TRACT CONGESTION [None]
